FAERS Safety Report 7435049-8 (Version None)
Quarter: 2011Q2

REPORT INFORMATION
  Report Type: 
  Country: None (occurrence: None)
  Receive Date: 20110425
  Receipt Date: 20110419
  Transmission Date: 20111010
  Serious: Yes (Hospitalization)
  Sender: FDA-Public Use
  Company Number: FR-ABBOTT-11P-056-0720433-00

PATIENT
  Age: 72 Year
  Sex: Female

DRUGS (11)
  1. PHENYTOIN [Concomitant]
     Indication: PRODUCT USED FOR UNKNOWN INDICATION
     Dates: start: 20110108, end: 20110110
  2. AMOXICILLIN [Concomitant]
     Indication: PRODUCT USED FOR UNKNOWN INDICATION
     Dates: end: 20110110
  3. DEPAKOTE [Suspect]
     Indication: BIPOLAR DISORDER
     Dosage: DAILY DOSE: 500MG
     Route: 048
     Dates: start: 20101101, end: 20101207
  4. LAMOTRIGINE [Suspect]
     Indication: EPILEPSY
     Dosage: DAILY DOSE: 25MG
     Route: 048
     Dates: start: 20110104, end: 20110110
  5. INIPOMP [Concomitant]
     Indication: PRODUCT USED FOR UNKNOWN INDICATION
  6. EXELON [Concomitant]
     Indication: PRODUCT USED FOR UNKNOWN INDICATION
  7. SERESTA [Concomitant]
     Indication: PRODUCT USED FOR UNKNOWN INDICATION
     Dates: start: 20101101
  8. PRODILANTIN [Suspect]
     Indication: EPILEPSY
     Dosage: DAILY DOSE: 75MG
     Route: 042
     Dates: start: 20101125, end: 20110125
  9. TEGRETOL [Suspect]
     Indication: EPILEPSY
     Route: 048
     Dates: start: 20101128, end: 20110125
  10. SINEMET [Concomitant]
     Indication: PRODUCT USED FOR UNKNOWN INDICATION
  11. LEVOTHYROX [Concomitant]
     Indication: PRODUCT USED FOR UNKNOWN INDICATION

REACTIONS (1)
  - DRUG RASH WITH EOSINOPHILIA AND SYSTEMIC SYMPTOMS [None]
